FAERS Safety Report 5542561-5 (Version None)
Quarter: 2007Q4

REPORT INFORMATION
  Report Type: 
  Country: None (occurrence: None)
  Receive Date: 20071123
  Receipt Date: 20070814
  Transmission Date: 20080405
  Serious: Yes (Other)
  Sender: FDA-Public Use
  Company Number: US-JNJFOC-20070706325

PATIENT
  Age: 41 Year
  Sex: Female
  Weight: 79.3795 kg

DRUGS (4)
  1. LEVAQUIN [Suspect]
     Indication: DRUG USE FOR UNKNOWN INDICATION
     Dosage: 500 MG, 1 IN 1 DAY, ORAL
     Route: 048
     Dates: start: 20060725
  2. ZOCOR [Concomitant]
  3. LISINOPRIL [Concomitant]
  4. AVANDAMENT (ANTI-DIABETICS) [Concomitant]

REACTIONS (1)
  - SHARED PSYCHOTIC DISORDER [None]
